FAERS Safety Report 8289772-6 (Version None)
Quarter: 2012Q2

REPORT INFORMATION
  Report Type: 
  Country: None (occurrence: None)
  Receive Date: 20120417
  Receipt Date: 20120412
  Transmission Date: 20120825
  Serious: No
  Sender: FDA-Public Use
  Company Number: US-PFIZER INC-2012092386

PATIENT
  Sex: Female

DRUGS (1)
  1. ADVIL CONGESTION RELIEF [Suspect]
     Indication: UPPER RESPIRATORY TRACT CONGESTION
     Dosage: UNK
     Dates: start: 20120412

REACTIONS (1)
  - DRUG INEFFECTIVE [None]
